FAERS Safety Report 23547143 (Version 2)
Quarter: 2024Q3

REPORT INFORMATION
  Report Type: Spontaneous
  Country: DE (occurrence: DE)
  Receive Date: 20240221
  Receipt Date: 20240711
  Transmission Date: 20241017
  Serious: Yes (Hospitalization, Other)
  Sender: CELLTRION
  Company Number: DE-CELLTRION INC.-2024DE003835

PATIENT

DRUGS (4)
  1. BEVACIZUMAB [Suspect]
     Active Substance: BEVACIZUMAB
     Indication: Peritoneal cancer index
     Dosage: UNKNOWN
  2. OLAPARIB [Suspect]
     Active Substance: OLAPARIB
     Indication: Peritoneal cancer index
     Dosage: UNKNOWN
     Route: 048
  3. CARBOPLATIN [Concomitant]
     Active Substance: CARBOPLATIN
     Indication: Ovarian cancer
     Dosage: 5 MG AUC
     Dates: start: 20231012
  4. PACLITAXEL [Concomitant]
     Active Substance: PACLITAXEL
     Indication: Ovarian cancer
     Dosage: 342 MG
     Dates: start: 20231012

REACTIONS (4)
  - General physical health deterioration [Unknown]
  - COVID-19 [Unknown]
  - Urinary tract infection [Recovered/Resolved]
  - Pyelitis [Unknown]

NARRATIVE: CASE EVENT DATE: 20231223
